FAERS Safety Report 9138356 (Version 1)
Quarter: 2013Q1

REPORT INFORMATION
  Report Type: Spontaneous
  Country: US (occurrence: None)
  Receive Date: 20130228
  Receipt Date: 20130228
  Transmission Date: 20140127
  Serious: Yes (Death, Other)
  Sender: FDA-Public Use
  Company Number: AUR-APL-2013-01742

PATIENT
  Sex: Male

DRUGS (10)
  1. METOPROLOL (METOPROLOL) [Suspect]
     Indication: PRODUCT USED FOR UNKNOWN INDICATION
  2. GABAPENTIN (GABAPENTIN) [Suspect]
     Indication: PRODUCT USED FOR UNKNOWN INDICATION
  3. LOSARTAN(LOSARTAN) [Suspect]
     Indication: PRODUCT USED FOR UNKNOWN INDICATION
  4. ACIPHEX (RABEPRAZOLE SODIUM) [Suspect]
     Indication: PRODUCT USED FOR UNKNOWN INDICATION
  5. LIPITOR (ATORVASTATIN CALCIUM) [Suspect]
     Indication: PRODUCT USED FOR UNKNOWN INDICATION
  6. ASA (ACETYLSALICYLIC ACID) [Suspect]
     Indication: PRODUCT USED FOR UNKNOWN INDICATION
  7. FISH OIL (FISH OIL) [Suspect]
     Indication: PRODUCT USED FOR UNKNOWN INDICATION
  8. LEVEMIR (INSULIN DETEMIR) [Suspect]
     Indication: PRODUCT USED FOR UNKNOWN INDICATION
  9. NOVOLOG (INSULIN ASPART) (NO PREF. NAME) [Suspect]
     Indication: PRODUCT USED FOR UNKNOWN INDICATION
  10. LASIX (FUROSEMIDE) [Suspect]
     Indication: PRODUCT USED FOR UNKNOWN INDICATION

REACTIONS (1)
  - Infarction [None]
